FAERS Safety Report 10075650 (Version 1)
Quarter: 2014Q2

REPORT INFORMATION
  Report Type: Spontaneous
  Country: BR (occurrence: BR)
  Receive Date: 20140414
  Receipt Date: 20140414
  Transmission Date: 20141212
  Serious: Yes (Other)
  Sender: FDA-Public Use
  Company Number: BR-JNJFOC-20140406792

PATIENT
  Age: 45 Year
  Sex: Female

DRUGS (3)
  1. XARELTO [Suspect]
     Indication: THROMBOSIS
     Route: 048
     Dates: start: 20140402, end: 20140402
  2. XARELTO [Suspect]
     Indication: PHLEBITIS
     Route: 048
     Dates: start: 20140402, end: 20140402
  3. MIOFLEX [Concomitant]
     Indication: PAIN IN EXTREMITY
     Route: 048
     Dates: start: 20140401

REACTIONS (3)
  - Blood pressure increased [Recovered/Resolved]
  - Therapeutic response changed [Recovered/Resolved]
  - Pain in extremity [Unknown]
